FAERS Safety Report 4341618-4 (Version None)
Quarter: 2004Q2

REPORT INFORMATION
  Report Type: 
  Country: None (occurrence: None)
  Receive Date: 20040419
  Receipt Date: 20040419
  Transmission Date: 20050107
  Serious: No
  Sender: FDA-Public Use
  Company Number: None

PATIENT
  Age: 61 Year
  Sex: Female

DRUGS (1)
  1. AMITRIPTYLINE 10 MG GENEVA GENERICS [Suspect]
     Dosage: 10 MG Q 6 HOURS ORAL
     Route: 048
     Dates: start: 20040216, end: 20040219

REACTIONS (2)
  - PHARMACEUTICAL PRODUCT COMPLAINT [None]
  - TINNITUS [None]
